FAERS Safety Report 12386672 (Version 2)
Quarter: 2016Q2

REPORT INFORMATION
  Report Type: Spontaneous
  Country: US (occurrence: US)
  Receive Date: 20160519
  Receipt Date: 20160610
  Transmission Date: 20160815
  Serious: Yes (Hospitalization)
  Sender: FDA-Public Use
  Company Number: US-IMPAX LABORATORIES, INC-2016-IPXL-00546

PATIENT
  Age: 17 Year
  Sex: Male

DRUGS (2)
  1. TETRACYCLINE HYDROCHLORIDE. [Suspect]
     Active Substance: TETRACYCLINE HYDROCHLORIDE
     Dosage: 500 MG, 4 /DAY
     Route: 048
  2. TETRACYCLINE HYDROCHLORIDE. [Suspect]
     Active Substance: TETRACYCLINE HYDROCHLORIDE
     Indication: ACNE
     Dosage: 250 MG, QID
     Route: 065

REACTIONS (3)
  - Pancreatic phlegmon [Recovered/Resolved]
  - Pancreatitis acute [Recovered/Resolved]
  - Retroperitoneal oedema [Recovered/Resolved]
